FAERS Safety Report 4849371-2 (Version None)
Quarter: 2005Q4

REPORT INFORMATION
  Report Type: 
  Country: None (occurrence: None)
  Receive Date: 20051207
  Receipt Date: 20051117
  Transmission Date: 20060501
  Serious: Yes (Hospitalization)
  Sender: FDA-Public Use
  Company Number: WAES 0511USA00856

PATIENT
  Age: 64 Year
  Sex: Female

DRUGS (2)
  1. ZOCOR [Suspect]
     Dosage: PO
     Route: 048
  2. GASTER [Concomitant]

REACTIONS (1)
  - HERPES ZOSTER [None]
